FAERS Safety Report 6471921-3 (Version None)
Quarter: 2009Q4

REPORT INFORMATION
  Report Type: 
  Country: None (occurrence: None)
  Receive Date: 20091202
  Receipt Date: 20091202
  Transmission Date: 20100525
  Serious: Yes (Hospitalization)
  Sender: FDA-Public Use
  Company Number: None

PATIENT
  Age: 22 Year
  Sex: Female
  Weight: 57 kg

DRUGS (2)
  1. FENTANYL-100 [Suspect]
     Indication: SEDATIVE THERAPY
     Dosage: 150 MICROGRAMS ONCE IV
     Route: 042
     Dates: start: 20090731
  2. MIDAZOLAM HCL [Suspect]
     Indication: SEDATIVE THERAPY
     Dosage: 3MG ONCE IV
     Route: 042
     Dates: start: 20090731

REACTIONS (3)
  - ANGIOEDEMA [None]
  - HYPERSENSITIVITY [None]
  - RESPIRATORY DISTRESS [None]
